FAERS Safety Report 9256754 (Version 2)
Quarter: 2013Q4

REPORT INFORMATION
  Report Type: Spontaneous
  Country: US (occurrence: US)
  Receive Date: 20130426
  Receipt Date: 20131211
  Transmission Date: 20140711
  Serious: Yes (Hospitalization, Disabling, Other)
  Sender: FDA-Public Use
  Company Number: US-ASTRAZENECA-2013SE27259

PATIENT
  Age: 40 Year
  Sex: 0

DRUGS (26)
  1. PREVACID OTC [Concomitant]
  2. ZANTAC [Concomitant]
  3. PEPCID [Concomitant]
  4. TAGAMET [Concomitant]
  5. BETROPINE [Concomitant]
  6. MORPHINE [Concomitant]
     Indication: SURGERY
  7. HYDROCODONE [Concomitant]
     Indication: PAIN
  8. AMBIEN [Concomitant]
     Indication: SLEEP DISORDER
  9. TOPAMAX [Concomitant]
     Indication: MIGRAINE
  10. CLONIDINE [Concomitant]
     Indication: BLOOD PRESSURE ABNORMAL
  11. TRAMADOL [Concomitant]
     Indication: PAIN
  12. NASANEX [Concomitant]
     Indication: MULTIPLE ALLERGIES
  13. SEROQUEL [Concomitant]
     Indication: SLEEP DISORDER
  14. ULTRACET [Concomitant]
     Indication: PAIN
  15. LUNESTA [Concomitant]
     Indication: SLEEP DISORDER
  16. ZYPREXA [Concomitant]
     Route: 048
     Dates: start: 20120807
  17. BACLOFEN [Concomitant]
     Indication: MUSCLE SPASMS
     Route: 048
     Dates: start: 20120416
  18. FUROSEMIDE [Concomitant]
     Route: 048
     Dates: start: 20120112
  19. NEXIUM [Suspect]
     Indication: GASTROOESOPHAGEAL REFLUX DISEASE
     Route: 048
  20. NEXIUM [Suspect]
     Indication: HIATUS HERNIA
     Route: 048
  21. NEXIUM [Suspect]
     Indication: GASTROOESOPHAGEAL REFLUX DISEASE
     Dosage: TWO TIMES A DAY
     Route: 048
     Dates: start: 2006
  22. NEXIUM [Suspect]
     Indication: HIATUS HERNIA
     Dosage: TWO TIMES A DAY
     Route: 048
     Dates: start: 2006
  23. NEXIUM [Suspect]
     Indication: GASTROOESOPHAGEAL REFLUX DISEASE
     Route: 048
     Dates: start: 20090303
  24. NEXIUM [Suspect]
     Indication: HIATUS HERNIA
     Route: 048
     Dates: start: 20090303
  25. PRILOSEC [Suspect]
     Route: 048
  26. PROTONIX [Concomitant]

REACTIONS (12)
  - Convulsion [Unknown]
  - Cardiac disorder [Unknown]
  - Mental disorder [Unknown]
  - Gallbladder disorder [Unknown]
  - Nausea [Unknown]
  - Osteoporosis [Unknown]
  - Wrist fracture [Unknown]
  - Bone disorder [Unknown]
  - Multiple fractures [Unknown]
  - Angina pectoris [Unknown]
  - Anxiety [Unknown]
  - Depression [Unknown]
